FAERS Safety Report 22197429 (Version 1)
Quarter: 2023Q2

REPORT INFORMATION
  Report Type: Report from Study
  Country: US (occurrence: None)
  Receive Date: 20230411
  Receipt Date: 20230411
  Transmission Date: 20230722
  Serious: Yes (Hospitalization)
  Sender: FDA-Public Use
  Company Number: US-Eisai Medical Research-EC-2023-137835

PATIENT
  Age: 45 Year
  Sex: Female

DRUGS (8)
  1. LENVATINIB [Suspect]
     Active Substance: LENVATINIB
     Indication: Gastrooesophageal cancer
     Route: 048
     Dates: start: 20221114, end: 20230306
  2. PEMBROLIZUMAB [Suspect]
     Active Substance: PEMBROLIZUMAB
     Indication: Gastrooesophageal cancer
     Route: 042
     Dates: start: 20221114, end: 20230213
  3. ONDANSETRON [Concomitant]
     Active Substance: ONDANSETRON
  4. HYDROMORPHONE [Concomitant]
     Active Substance: HYDROMORPHONE
  5. NORVASC [Concomitant]
     Active Substance: AMLODIPINE BESYLATE
  6. REGLAN [Concomitant]
     Active Substance: METOCLOPRAMIDE HYDROCHLORIDE
  7. GABAPENTIN [Concomitant]
     Active Substance: GABAPENTIN
  8. OMEPRAZOLE [Concomitant]
     Active Substance: OMEPRAZOLE

REACTIONS (1)
  - Acute kidney injury [Unknown]

NARRATIVE: CASE EVENT DATE: 20230402
